FAERS Safety Report 5592135-5 (Version None)
Quarter: 2007Q4

REPORT INFORMATION
  Report Type: 
  Country: None (occurrence: None)
  Receive Date: 20071217
  Receipt Date: 20071026
  Transmission Date: 20080405
  Serious: No
  Sender: FDA-Public Use
  Company Number: BDI-010596

PATIENT
  Age: 25 Year
  Sex: Male

DRUGS (2)
  1. MULTIHANCE [Suspect]
     Indication: CONVULSION
     Dosage: 10 ML ONCE SY
  2. MULTIHANCE [Suspect]
     Indication: NUCLEAR MAGNETIC RESONANCE IMAGING BRAIN
     Dosage: 10 ML ONCE SY

REACTIONS (1)
  - CONTRAST MEDIA REACTION [None]
